FAERS Safety Report 12624199 (Version 1)
Quarter: 2016Q3

REPORT INFORMATION
  Report Type: Spontaneous
  Country: US (occurrence: US)
  Receive Date: 20160805
  Receipt Date: 20160805
  Transmission Date: 20161109
  Serious: Yes (Other)
  Sender: FDA-Public Use
  Company Number: US-CIPLA LTD.-2016US16965

PATIENT

DRUGS (2)
  1. WARFARIN SODIUM. [Suspect]
     Active Substance: WARFARIN SODIUM
     Dosage: 2 MG, 3 1/2 TABLETS (MON, WED, FRI) AND 3 TABLETS (TUE, THUR,SAT,SUN)
     Route: 048
     Dates: start: 201603
  2. HYDROCHLOROTHIAZIDE. [Concomitant]
     Active Substance: HYDROCHLOROTHIAZIDE
     Indication: HYPERTENSION
     Dosage: 25 MG, 1 TABLET A DAY
     Route: 065

REACTIONS (4)
  - Burning sensation [Unknown]
  - Swelling face [Unknown]
  - Eye swelling [Unknown]
  - Generalised erythema [Unknown]

NARRATIVE: CASE EVENT DATE: 20160629
